FAERS Safety Report 24366468 (Version 3)
Quarter: 2025Q2

REPORT INFORMATION
  Report Type: Report from Study
  Country: GB (occurrence: GB)
  Receive Date: 20240926
  Receipt Date: 20250505
  Transmission Date: 20250717
  Serious: Yes (Life-Threatening, Hospitalization, Other)
  Sender: ABBVIE
  Company Number: GB-ABBVIE-5938104

PATIENT
  Age: 44 Year
  Sex: Female
  Weight: 99 kg

DRUGS (7)
  1. UPADACITINIB [Suspect]
     Active Substance: UPADACITINIB
     Indication: Colitis ulcerative
     Route: 048
     Dates: start: 20240321, end: 20240520
  2. UPADACITINIB [Suspect]
     Active Substance: UPADACITINIB
     Indication: Colitis ulcerative
     Route: 048
     Dates: start: 20240521, end: 20240815
  3. PENTASA [Concomitant]
     Active Substance: MESALAMINE
     Indication: Colitis ulcerative
     Route: 048
     Dates: start: 2016
  4. OMEPRAZOLE [Concomitant]
     Active Substance: OMEPRAZOLE
     Indication: Prophylaxis
     Route: 048
     Dates: start: 2000
  5. CITALOPRAM [Concomitant]
     Active Substance: CITALOPRAM
     Indication: Anxiety
     Route: 048
     Dates: start: 2000
  6. NEFOPAM [Concomitant]
     Active Substance: NEFOPAM
     Indication: Pain
     Route: 048
     Dates: start: 20240822
  7. FOLIC ACID [Concomitant]
     Active Substance: FOLIC ACID
     Indication: Colitis ulcerative
     Route: 048
     Dates: start: 20240822

REACTIONS (2)
  - Pulmonary embolism [Recovered/Resolved]
  - Cholecystitis acute [Recovered/Resolved]

NARRATIVE: CASE EVENT DATE: 20240822
